FAERS Safety Report 16105210 (Version 1)
Quarter: 2019Q2

REPORT INFORMATION
  Report Type: Spontaneous
  Country: US (occurrence: US)
  Receive Date: 20190321
  Receipt Date: 20190321
  Transmission Date: 20190711
  Serious: Yes (Hospitalization, Other)
  Sender: FDA-Public Use
  Company Number: None

PATIENT
  Age: 75 Year
  Sex: Female
  Weight: 62.7 kg

DRUGS (14)
  1. DARATUMUMAB [Concomitant]
     Active Substance: DARATUMUMAB
  2. ACETAMINOPHEN. [Concomitant]
     Active Substance: ACETAMINOPHEN
  3. CHOLECALCIFEROL [Concomitant]
     Active Substance: CHOLECALCIFEROL
  4. MELATONIN [Concomitant]
     Active Substance: MELATONIN
  5. CALCIUM-VITAMIN D [Concomitant]
     Active Substance: CALCIUM\VITAMIN D
  6. METOPROLOL. [Concomitant]
     Active Substance: METOPROLOL
  7. PRAVASTATIN. [Concomitant]
     Active Substance: PRAVASTATIN
  8. LENALIDOMIDE [Concomitant]
     Active Substance: LENALIDOMIDE
  9. ESOMEPRAZOLE. [Concomitant]
     Active Substance: ESOMEPRAZOLE MAGNESIUM
  10. ONDANSETRON [Concomitant]
     Active Substance: ONDANSETRON
  11. CARFILZOMIB [Suspect]
     Active Substance: CARFILZOMIB
     Indication: PLASMA CELL MYELOMA
     Route: 042
     Dates: start: 20190314, end: 20190315
  12. ACYCLOVIR. [Concomitant]
     Active Substance: ACYCLOVIR
  13. CYANOCOBALAMIN. [Concomitant]
     Active Substance: CYANOCOBALAMIN
  14. DEXAMETHASONE. [Concomitant]
     Active Substance: DEXAMETHASONE

REACTIONS (2)
  - Acute kidney injury [None]
  - Thrombotic microangiopathy [None]

NARRATIVE: CASE EVENT DATE: 20190316
